FAERS Safety Report 4575770-2 (Version None)
Quarter: 2005Q1

REPORT INFORMATION
  Report Type: 
  Country: None (occurrence: None)
  Receive Date: 20050209
  Receipt Date: 20050125
  Transmission Date: 20050727
  Serious: Yes (Other)
  Sender: FDA-Public Use
  Company Number: SE-SANOFI-SYNTHELABO-A01200500465

PATIENT
  Sex: Female

DRUGS (4)
  1. COZAAR [Concomitant]
     Route: 048
  2. LEUCOVORIN CALCIUM [Concomitant]
     Route: 042
     Dates: start: 20041201, end: 20041201
  3. ELOXATIN [Suspect]
     Route: 042
     Dates: start: 20041201, end: 20041201
  4. FLUOROURACIL [Concomitant]
     Route: 042
     Dates: start: 20041201, end: 20041201

REACTIONS (1)
  - RETINAL DETACHMENT [None]
